FAERS Safety Report 13430160 (Version 1)
Quarter: 2017Q2

REPORT INFORMATION
  Report Type: Spontaneous
  Country: US (occurrence: US)
  Receive Date: 20170411
  Receipt Date: 20170411
  Transmission Date: 20170830
  Serious: Yes (Death, Hospitalization)
  Sender: FDA-Public Use
  Company Number: None

PATIENT
  Age: 69 Year
  Sex: Female
  Weight: 97.9 kg

DRUGS (3)
  1. NIVOLUMAB 40MG VIALS [Suspect]
     Active Substance: NIVOLUMAB
  2. NIVOLUMAB 100MG VIALS [Suspect]
     Active Substance: NIVOLUMAB
     Indication: NEUROENDOCRINE CARCINOMA OF THE SKIN
     Dosage: 246MGS X1 IVSS
     Route: 042
     Dates: start: 20170220
  3. IPILIMUMAB 50 MG VIALS [Suspect]
     Active Substance: IPILIMUMAB
     Indication: NEUROENDOCRINE CARCINOMA OF THE SKIN
     Dosage: 80 MGS X1 IVSS
     Route: 042
     Dates: start: 20170220

REACTIONS (13)
  - Hepatitis [None]
  - Myocarditis [None]
  - Dyspnoea [None]
  - Oxygen saturation decreased [None]
  - Nephritis [None]
  - Chest pain [None]
  - Bundle branch block left [None]
  - Multiple organ dysfunction syndrome [None]
  - Atrioventricular block [None]
  - Asthenia [None]
  - Electrocardiogram QT prolonged [None]
  - Bacteraemia [None]
  - Myositis [None]

NARRATIVE: CASE EVENT DATE: 20170331
